FAERS Safety Report 5268215-0 (Version None)
Quarter: 2007Q1

REPORT INFORMATION
  Report Type: 
  Country: None (occurrence: None)
  Receive Date: 20070314
  Receipt Date: 20070314
  Transmission Date: 20070707
  Serious: Yes (Hospitalization)
  Sender: FDA-Public Use
  Company Number: None

PATIENT
  Age: 56 Year
  Sex: Female
  Weight: 73 kg

DRUGS (1)
  1. LEVOFLOXACIN [Suspect]
     Indication: WOUND INFECTION
     Dosage: 500 MG Q24H IV DRIP
     Route: 041
     Dates: start: 20070313, end: 20070313

REACTIONS (7)
  - ANAPHYLACTIC REACTION [None]
  - CARDIO-RESPIRATORY ARREST [None]
  - DRUG HYPERSENSITIVITY [None]
  - EFFUSION [None]
  - HYPOGLYCAEMIA [None]
  - HYPOXIA [None]
  - SINUS BRADYCARDIA [None]
